FAERS Safety Report 8207178-2 (Version None)
Quarter: 2012Q1

REPORT INFORMATION
  Report Type: 
  Country: None (occurrence: None)
  Receive Date: 20120314
  Receipt Date: 20120310
  Transmission Date: 20120608
  Serious: No
  Sender: FDA-Public Use
  Company Number: US-PFIZER INC-2012063699

PATIENT
  Sex: Male
  Weight: 106.58 kg

DRUGS (3)
  1. LIPITOR [Suspect]
     Dosage: 10 MG, 1X/DAY
     Route: 048
     Dates: start: 20120201, end: 20120310
  2. TOPROL-XL [Concomitant]
     Indication: HYPERTENSION
     Dosage: 10 MG, UNK
  3. LIPITOR [Suspect]
     Indication: BLOOD CHOLESTEROL INCREASED
     Dosage: 10 MG, 1X/DAY
     Route: 048
     Dates: end: 20111201

REACTIONS (4)
  - MEMORY IMPAIRMENT [None]
  - CONFUSIONAL STATE [None]
  - MYALGIA [None]
  - VITAMIN D DECREASED [None]
